FAERS Safety Report 13291364 (Version 1)
Quarter: 2017Q1

REPORT INFORMATION
  Report Type: Spontaneous
  Country: US (occurrence: US)
  Receive Date: 20170302
  Receipt Date: 20170302
  Transmission Date: 20170428
  Serious: No
  Sender: FDA-Public Use
  Company Number: US-PERRIGO-16US018300

PATIENT
  Sex: Female

DRUGS (4)
  1. LOPERAMIDE HYDROCHLORIDE. [Suspect]
     Active Substance: LOPERAMIDE HYDROCHLORIDE
     Indication: PRODUCT USED FOR UNKNOWN INDICATION
     Dosage: 2 MG, SINGLE
     Route: 048
     Dates: start: 201607, end: 201607
  2. IRON [Suspect]
     Active Substance: IRON
     Indication: SUPPLEMENTATION THERAPY
     Dosage: UNKNOWN, UNKNOWN
     Route: 048
  3. CEPHALEXIN                         /00145501/ [Suspect]
     Active Substance: CEPHALEXIN
     Indication: PRODUCT USED FOR UNKNOWN INDICATION
     Dosage: UNKNOWN, UNKNOWN
     Route: 048
     Dates: start: 20160616
  4. LOPERAMIDE HYDROCHLORIDE. [Suspect]
     Active Substance: LOPERAMIDE HYDROCHLORIDE
     Dosage: 2 MG, SINGLE
     Route: 048
     Dates: start: 20160716, end: 20160716

REACTIONS (7)
  - Peripheral swelling [Recovered/Resolved]
  - Lip swelling [Recovered/Resolved]
  - Erythema [Not Recovered/Not Resolved]
  - Papule [Recovered/Resolved]
  - Chills [Recovered/Resolved]
  - Skin warm [Recovered/Resolved]
  - Incorrect dose administered [Recovered/Resolved]

NARRATIVE: CASE EVENT DATE: 201607
